FAERS Safety Report 14790880 (Version 1)
Quarter: 2018Q2

REPORT INFORMATION
  Report Type: Report from Study
  Country: FR (occurrence: FR)
  Receive Date: 20180423
  Receipt Date: 20180423
  Transmission Date: 20180711
  Serious: Yes (Hospitalization, Other)
  Sender: FDA-Public Use
  Company Number: FR-PFIZER INC-2012168947

PATIENT
  Age: 44 Year
  Sex: Male
  Weight: 64 kg

DRUGS (16)
  1. NORVIR [Suspect]
     Active Substance: RITONAVIR
     Dosage: 100 MG, 1X/DAY
     Dates: start: 20120705, end: 20120709
  2. ZELITREX [Concomitant]
     Active Substance: VALACYCLOVIR HYDROCHLORIDE
     Indication: APHTHOUS ULCER
     Dosage: UNK
     Dates: start: 20120721
  3. CELSENTRI [Suspect]
     Active Substance: MARAVIROC
     Indication: HIV INFECTION
     Dosage: 150, 2X/DAY
     Dates: start: 20120705, end: 20120707
  4. TRUVADA [Suspect]
     Active Substance: EMTRICITABINE\TENOFOVIR DISOPROXIL FUMARATE
     Dosage: 2 DF, 1X/DAY
     Dates: start: 20120713, end: 20120717
  5. REYATAZ [Suspect]
     Active Substance: ATAZANAVIR SULFATE
     Indication: HIV INFECTION
     Dosage: 300 MG, 1X/DAY
     Dates: start: 20120705, end: 20120707
  6. REYATAZ [Suspect]
     Active Substance: ATAZANAVIR SULFATE
     Dosage: 300 MG, 1X/DAY
     Dates: start: 20120705, end: 20120709
  7. FUNGIZONE [Concomitant]
     Active Substance: AMPHOTERICIN B
     Indication: APHTHOUS ULCER
     Dosage: UNK
  8. PENTASA [Concomitant]
     Active Substance: MESALAMINE
     Indication: COLITIS ULCERATIVE
     Dosage: 2 G, 2X/DAY
  9. MALOCIDE (PYRIMETHAMINE) [Suspect]
     Active Substance: PYRIMETHAMINE
     Indication: TOXOPLASMOSIS PROPHYLAXIS
     Dosage: 100 MG, 1X/DAY
     Dates: start: 20120705, end: 20120717
  10. ISENTRESS [Suspect]
     Active Substance: RALTEGRAVIR POTASSIUM
     Indication: HIV INFECTION
     Dosage: 400 MG, 2X/DAY
     Dates: start: 20120713, end: 20120717
  11. CELSENTRI [Suspect]
     Active Substance: MARAVIROC
     Dosage: 300, 2X/DAY
     Dates: start: 20120713, end: 20120717
  12. TRUVADA [Suspect]
     Active Substance: EMTRICITABINE\TENOFOVIR DISOPROXIL FUMARATE
     Indication: HIV INFECTION
     Dosage: 1 DF, 1X/DAY
     Dates: start: 20120705, end: 20120710
  13. LEDERFOLINE [Suspect]
     Active Substance: LEUCOVORIN CALCIUM
     Dosage: UNK
     Dates: start: 20120705
  14. PENTACARINAT [Suspect]
     Active Substance: PENTAMIDINE ISETHIONATE
     Dosage: UNK
     Dates: start: 20120623, end: 20120717
  15. NORVIR [Suspect]
     Active Substance: RITONAVIR
     Indication: HIV INFECTION
     Dosage: 100 MG, 1X/DAY
     Dates: start: 20120705, end: 20120707
  16. FLAGYL [Concomitant]
     Active Substance: METRONIDAZOLE\METRONIDAZOLE HYDROCHLORIDE
     Indication: GIARDIASIS
     Dosage: 500 MG, 3X/DAY

REACTIONS (12)
  - Jaundice [Recovered/Resolved]
  - Enanthema [Recovering/Resolving]
  - Diarrhoea [Recovered/Resolved]
  - Fatigue [Unknown]
  - Pancytopenia [Recovering/Resolving]
  - Nausea [Recovered/Resolved]
  - Seborrhoeic dermatitis [Unknown]
  - Rash generalised [Recovering/Resolving]
  - Pruritus [Recovering/Resolving]
  - Skin exfoliation [Unknown]
  - Hyperbilirubinaemia [Unknown]
  - Toxic skin eruption [Unknown]

NARRATIVE: CASE EVENT DATE: 20120707
